FAERS Safety Report 4625317-7 (Version None)
Quarter: 2005Q2

REPORT INFORMATION
  Report Type: 
  Country: None (occurrence: None)
  Receive Date: 20050325
  Receipt Date: 20050127
  Transmission Date: 20051028
  Serious: No
  Sender: FDA-Public Use
  Company Number: USA050189321

PATIENT
  Age: 58 Year
  Sex: Female

DRUGS (5)
  1. FORTEO [Suspect]
     Indication: OSTEOPOROSIS
     Dosage: 20 UG DAY
     Dates: start: 20041101
  2. EVISTA [Suspect]
     Dates: start: 20020101
  3. ULTRAM [Concomitant]
  4. SOMA [Concomitant]
  5. ACETAMINOPHEN W/HYDROCODONE [Concomitant]

REACTIONS (6)
  - BACK PAIN [None]
  - DIZZINESS [None]
  - DYSGEUSIA [None]
  - DYSPEPSIA [None]
  - HEART RATE INCREASED [None]
  - NAUSEA [None]
